FAERS Safety Report 8723067 (Version 3)
Quarter: 2013Q2

REPORT INFORMATION
  Report Type: Report from Study
  Country: JP (occurrence: JP)
  Receive Date: 20120814
  Receipt Date: 20130410
  Transmission Date: 20140414
  Serious: Yes (Hospitalization)
  Sender: FDA-Public Use
  Company Number: JP-009507513-1208JPN000349

PATIENT
  Age: 51 Year
  Sex: Male
  Weight: 117 kg

DRUGS (15)
  1. PEGINTRON [Suspect]
     Indication: CHRONIC HEPATITIS C
     Dosage: 1.28 MICROGRAM PER KILOGRAM, QW
     Route: 058
     Dates: start: 20120710, end: 20120814
  2. REBETOL [Suspect]
     Indication: CHRONIC HEPATITIS C
     Dosage: 1000 MG, QD
     Route: 048
     Dates: start: 20120709, end: 20120710
  3. REBETOL [Suspect]
     Dosage: 600 MG, QD
     Route: 048
     Dates: start: 20120710, end: 20120801
  4. REBETOL [Suspect]
     Dosage: 400 MG, QD
     Route: 048
     Dates: start: 20120802, end: 20120818
  5. TELAVIC [Suspect]
     Indication: CHRONIC HEPATITIS C
     Dosage: 1500 MG, QD
     Route: 048
     Dates: start: 20120709, end: 20120730
  6. AMLODIN (AMLODIPINE BESYLATE) [Concomitant]
     Indication: HYPERTENSION
     Dosage: 5 MG, QD; FORMULATION POR
     Route: 048
  7. OLMETEC [Concomitant]
     Indication: HYPERTENSION
     Dosage: 40 MG, QD; FORMULATION POR
     Route: 048
  8. PAXIL [Concomitant]
     Indication: DEPRESSION
     Dosage: 12.5 MG, QD; FORMULATION POR
     Route: 048
  9. MYSLEE [Concomitant]
     Indication: INSOMNIA
     Dosage: 10 MG, QD; FORMULATION POR
     Route: 048
  10. MUCOSOLVAN L [Concomitant]
     Indication: SPUTUM RETENTION
     Dosage: 45 MG, QD; FORMULATION POR
     Route: 048
  11. ROHYPNOL [Concomitant]
     Indication: INSOMNIA
     Dosage: 2 MG, QD; FORMULATION POR
     Route: 048
  12. XYZAL [Concomitant]
     Indication: SEASONAL ALLERGY
     Dosage: 5 MG, QD; FORMULATION POR
     Route: 048
  13. LOXOPROFEN SODIUM [Concomitant]
     Indication: INTERVERTEBRAL DISC PROTRUSION
     Dosage: 180 MG, QD; FORMULATION POR
     Route: 048
  14. ALLOPURINOL [Concomitant]
     Indication: HYPERURICAEMIA
     Dosage: 300 MG, QD; FORMULATION POR
     Route: 048
  15. REBAMIPIDE [Concomitant]
     Indication: PROPHYLAXIS
     Dosage: 300 MG, QD; FORMULATION POR
     Route: 048

REACTIONS (1)
  - Urinary tract infection [Recovered/Resolved]
